FAERS Safety Report 6699399-5 (Version None)
Quarter: 2010Q2

REPORT INFORMATION
  Report Type: 
  Country: None (occurrence: None)
  Receive Date: 20100426
  Receipt Date: 20100413
  Transmission Date: 20101027
  Serious: Yes (Hospitalization, Other)
  Sender: FDA-Public Use
  Company Number: 2010AL002213

PATIENT
  Age: 54 Year
  Sex: Male
  Weight: 54.8852 kg

DRUGS (7)
  1. OXYCODONE HCL TABLETS, USP                      (AMIDE) [Suspect]
     Indication: PAIN
     Dosage: 15 MG; Q6H; PO
     Route: 048
     Dates: start: 20100225
  2. SORAFENIB [Concomitant]
  3. METHADONE HCL [Concomitant]
  4. GABAPENTIN [Concomitant]
  5. LORAZEPAM [Concomitant]
  6. CARISOPRODOL [Concomitant]
  7. COMPAZINE [Concomitant]

REACTIONS (5)
  - BLISTER [None]
  - DRUG TOXICITY [None]
  - HYPONATRAEMIA [None]
  - INAPPROPRIATE SCHEDULE OF DRUG ADMINISTRATION [None]
  - RASH [None]
